FAERS Safety Report 7579501-3 (Version None)
Quarter: 2011Q2

REPORT INFORMATION
  Report Type: 
  Country: None (occurrence: None)
  Receive Date: 20110629
  Receipt Date: 20091119
  Transmission Date: 20111010
  Serious: Yes (Other)
  Sender: FDA-Public Use
  Company Number: US-BAYER-200939980NA

PATIENT
  Age: 46 Year
  Sex: Female
  Weight: 58.957 kg

DRUGS (16)
  1. TRASYLOL [Suspect]
     Indication: MITRAL VALVE REPLACEMENT
  2. COUMADIN [Concomitant]
  3. PROTONIX [Concomitant]
     Dosage: 150 MG, UNK
     Dates: start: 20000831
  4. TOPROL-XL [Concomitant]
     Dosage: 50 MG, QD
  5. LASIX [Concomitant]
     Dosage: 20 MG, UNK
     Dates: start: 20000831
  6. ANCEF [Concomitant]
     Dosage: UNK
     Dates: start: 20000831
  7. LANOXIN [Concomitant]
     Dosage: 0.5 MG, UNK
     Dates: start: 20000831
  8. MILRINONE [Concomitant]
     Dosage: TITRATED
     Dates: start: 20000831
  9. PLATELETS [Concomitant]
     Dosage: 1 U, UNK
     Dates: start: 20000831
  10. AMIODARONE HCL [Concomitant]
     Indication: ATRIAL FIBRILLATION
     Dosage: UNK
     Route: 042
     Dates: start: 20000831
  11. ERYTHROMYCIN [Concomitant]
  12. LANOXIN [Concomitant]
     Dosage: 0.125 MG, QD
  13. TRASYLOL [Suspect]
     Indication: AORTIC VALVE REPLACEMENT
     Dosage: 1 ML, 200 ML LOADING DOSE FOLLOWED BY 50 ML/HOUR INFUSION
     Route: 042
     Dates: start: 20000831, end: 20000831
  14. TRASYLOL [Suspect]
     Indication: ATRIAL THROMBOSIS
  15. HEPARIN [Concomitant]
     Dosage: UNK
     Dates: start: 20000831, end: 20000901
  16. RED BLOOD CELLS [Concomitant]
     Dosage: 3 U, UNK
     Dates: start: 20000831

REACTIONS (11)
  - STRESS [None]
  - ANXIETY [None]
  - RENAL IMPAIRMENT [None]
  - EMOTIONAL DISTRESS [None]
  - RENAL FAILURE [None]
  - RENAL INJURY [None]
  - UNEVALUABLE EVENT [None]
  - FEAR [None]
  - PAIN [None]
  - INJURY [None]
  - ANHEDONIA [None]
